FAERS Safety Report 5636772-8 (Version None)
Quarter: 2008Q1

REPORT INFORMATION
  Report Type: 
  Country: None (occurrence: None)
  Receive Date: 20080225
  Receipt Date: 20080214
  Transmission Date: 20080703
  Serious: Yes (Death, Other)
  Sender: FDA-Public Use
  Company Number: ZA-BRISTOL-MYERS SQUIBB COMPANY-13969910

PATIENT
  Sex: Female

DRUGS (1)
  1. STOCRIN TABS [Suspect]

REACTIONS (6)
  - ABORTION INDUCED [None]
  - ABORTION SPONTANEOUS [None]
  - DEATH [None]
  - DEVELOPMENTAL DELAY [None]
  - LIVE BIRTH [None]
  - PREGNANCY [None]
